FAERS Safety Report 4321989-5 (Version None)
Quarter: 2004Q1

REPORT INFORMATION
  Report Type: 
  Country: None (occurrence: None)
  Receive Date: 20040319
  Receipt Date: 20040206
  Transmission Date: 20041129
  Serious: No
  Sender: FDA-Public Use
  Company Number: 200400930

PATIENT
  Age: 92 Year
  Sex: Female

DRUGS (2)
  1. LUMIGAN [Suspect]
     Indication: GLAUCOMA
     Dosage: 2 DROP QD EYE
     Route: 047
     Dates: start: 20020901
  2. ALPHAGAN P [Concomitant]

REACTIONS (2)
  - BURNING SENSATION [None]
  - EYE IRRITATION [None]
